FAERS Safety Report 9732231 (Version 1)
Quarter: 2013Q4

REPORT INFORMATION
  Report Type: Report from Study
  Country: PR (occurrence: PR)
  Receive Date: 20131205
  Receipt Date: 20131205
  Transmission Date: 20140711
  Serious: Yes (Hospitalization, Other)
  Sender: FDA-Public Use
  Company Number: PR-009507513-1311USA012060

PATIENT
  Sex: Female
  Weight: 72.56 kg

DRUGS (5)
  1. IMIPENEM (+) CILASTATIN SODIUM [Suspect]
     Dosage: UNK
     Dates: start: 2011, end: 2011
  2. HUMIRA [Suspect]
     Indication: CROHN^S DISEASE
     Dosage: 40 MG, 1 IN 2 WEEK, 3-4 YEARS
     Route: 058
     Dates: end: 201104
  3. HUMIRA [Suspect]
     Dosage: 40 MG 1 IN 2 WEEK
     Route: 058
     Dates: start: 2011
  4. PROTONIX [Concomitant]
     Dosage: 40 MG, PRN
     Route: 048
  5. ULTRACET [Concomitant]
     Dosage: UNK, PRN

REACTIONS (4)
  - Fistula [Recovered/Resolved]
  - Hypersensitivity [Recovered/Resolved]
  - Colostomy [Recovered/Resolved]
  - Injection site haematoma [Recovered/Resolved]
